FAERS Safety Report 8208421-6 (Version None)
Quarter: 2012Q1

REPORT INFORMATION
  Report Type: 
  Country: None (occurrence: None)
  Receive Date: 20120314
  Receipt Date: 20120306
  Transmission Date: 20120608
  Serious: Yes (Hospitalization, Disabling)
  Sender: FDA-Public Use
  Company Number: US-BAYER-2011-073681

PATIENT
  Age: 30 Year
  Sex: Female
  Weight: 58 kg

DRUGS (9)
  1. PROTONIX [Concomitant]
     Dosage: UNK
     Route: 048
     Dates: start: 20091019
  2. CYCLOBENZAPRINE HCL [Concomitant]
     Dosage: 10 MG, PRN
     Route: 048
     Dates: start: 20091005
  3. HYDROCODONE BITARTRATE AND ACETAMINOPHEN [Concomitant]
     Dosage: 5 MG, PRN
     Route: 048
     Dates: start: 20091008, end: 20091104
  4. IBUPROFEN (ADVIL) [Concomitant]
     Dosage: UNK
     Route: 048
     Dates: start: 20091020
  5. YASMIN [Suspect]
     Indication: ACNE
     Dosage: UNK
     Dates: start: 20030101, end: 20040101
  6. NSAID'S [Concomitant]
     Dosage: UNK UNK, PRN
     Dates: start: 20091001
  7. NASACORT [Concomitant]
     Dosage: 2 PUFF(S), UNK
     Route: 045
     Dates: start: 20090920, end: 20091223
  8. SOMA [Concomitant]
     Dosage: UNK
     Route: 048
     Dates: start: 20091019
  9. DROSPIRENONE AND ETHINYL ESTRADIOL [Suspect]
     Indication: ACNE
     Dosage: UNK
     Dates: start: 20080101, end: 20091019

REACTIONS (7)
  - GENERAL PHYSICAL HEALTH DETERIORATION [None]
  - ANHEDONIA [None]
  - PAIN [None]
  - INJURY [None]
  - DEEP VEIN THROMBOSIS [None]
  - ANXIETY [None]
  - EMOTIONAL DISTRESS [None]
